FAERS Safety Report 18383713 (Version 9)
Quarter: 2022Q4

REPORT INFORMATION
  Report Type: Spontaneous
  Country: JP (occurrence: None)
  Receive Date: 20201014
  Receipt Date: 20221212
  Transmission Date: 20230113
  Serious: Yes (Death, Other)
  Sender: FDA-Public Use
  Company Number: 2020SF31469

PATIENT
  Age: 27543 Day
  Sex: Female
  Weight: 62 kg

DRUGS (5)
  1. LYNPARZA [Suspect]
     Active Substance: OLAPARIB
     Indication: Ovarian cancer recurrent
     Route: 048
     Dates: start: 20190523, end: 20191128
  2. FAMOTIDINE [Concomitant]
     Active Substance: FAMOTIDINE
     Indication: Gastrooesophageal reflux disease
     Route: 048
  3. PITAVASTATIN CALCIUM [Concomitant]
     Active Substance: PITAVASTATIN CALCIUM
     Indication: Dyslipidaemia
     Route: 048
  4. FERROUS SULFATE [Concomitant]
     Active Substance: FERROUS SULFATE
     Indication: Nephrogenic anaemia
     Route: 048
     Dates: start: 20191010
  5. REBAMIPIDE [Concomitant]
     Active Substance: REBAMIPIDE
     Indication: Nephrogenic anaemia
     Route: 048
     Dates: start: 20191010

REACTIONS (2)
  - Malignant neoplasm progression [Fatal]
  - Anaemia [Recovering/Resolving]

NARRATIVE: CASE EVENT DATE: 20191017
